FAERS Safety Report 14185923 (Version 1)
Quarter: 2017Q4

REPORT INFORMATION
  Report Type: Report from Study
  Country: US (occurrence: US)
  Receive Date: 20171114
  Receipt Date: 20171114
  Transmission Date: 20180321
  Serious: Yes (Other)
  Sender: FDA-Public Use
  Company Number: PHEH2017US036263

PATIENT
  Age: 44 Year
  Sex: Male
  Weight: 90.71 kg

DRUGS (1)
  1. OMNITROPE [Suspect]
     Active Substance: SOMATROPIN
     Indication: PRODUCT USED FOR UNKNOWN INDICATION
     Dosage: UNK
     Route: 065

REACTIONS (2)
  - Pituitary tumour [Unknown]
  - Pituitary tumour recurrent [Unknown]

NARRATIVE: CASE EVENT DATE: 20140501
